FAERS Safety Report 24113809 (Version 2)
Quarter: 2024Q3

REPORT INFORMATION
  Report Type: Spontaneous
  Country: CH (occurrence: CH)
  Receive Date: 20240720
  Receipt Date: 20240827
  Transmission Date: 20241017
  Serious: Yes (Death, Other)
  Sender: REGENERON
  Company Number: CH-BAYER-2024A104075

PATIENT
  Age: 88 Year
  Sex: Female

DRUGS (2)
  1. EYLEA [Suspect]
     Active Substance: AFLIBERCEPT
     Indication: Product used for unknown indication
     Dosage: RIGHT EYE (OD),STRENGTH: 40MG/ML
     Dates: start: 20191002, end: 20191002
  2. EYLEA [Suspect]
     Active Substance: AFLIBERCEPT
     Dosage: RIGHT EYE (OD), 40 MG/ML
     Dates: start: 20191120, end: 20191120

REACTIONS (1)
  - Death [Fatal]
